FAERS Safety Report 8984443 (Version 1)
Quarter: 2012Q4

REPORT INFORMATION
  Report Type: Spontaneous
  Country: BE (occurrence: None)
  Receive Date: 20121213
  Receipt Date: 20121213
  Transmission Date: 20130627
  Serious: No
  Sender: FDA-Public Use
  Company Number: TPA2012A08749

PATIENT
  Age: 84 Year
  Sex: Female

DRUGS (7)
  1. ADENURIC [Suspect]
     Route: 048
     Dates: start: 201205
  2. TRASOLAN (TRAZODONE HYDROCHLORIDE) [Concomitant]
  3. D-CURE (COLECALCIFEROL) [Concomitant]
  4. PARACETAMOL [Concomitant]
  5. SPIRONOLACTONE [Concomitant]
  6. BURINEX (BUMETANIDE) [Concomitant]
  7. RANITIDINE SANDOZ (RANITIDINE HYDROCHLORIDE) [Concomitant]

REACTIONS (2)
  - Faecal incontinence [None]
  - Diarrhoea [None]
